FAERS Safety Report 4446506-0 (Version None)
Quarter: 2004Q3

REPORT INFORMATION
  Report Type: 
  Country: None (occurrence: None)
  Receive Date: 20040908
  Receipt Date: 20040903
  Transmission Date: 20050211
  Serious: Yes (Other)
  Sender: FDA-Public Use
  Company Number: 002608

PATIENT
  Age: 66 Year
  Sex: Female

DRUGS (5)
  1. MEDROXYPROGESTERONE ACETATE [Suspect]
     Dates: start: 19910801
  2. PREMARIN [Suspect]
     Dates: start: 19910801, end: 19960101
  3. CYCRIN [Suspect]
     Dates: end: 19960101
  4. PROVERA [Suspect]
     Dates: start: 19910801
  5. MEDROXYPROGESTERONE ACETATE [Suspect]
     Dates: start: 19960101, end: 20021101

REACTIONS (2)
  - BREAST CANCER FEMALE [None]
  - BREAST CANCER IN SITU [None]
